FAERS Safety Report 17809547 (Version 1)
Quarter: 2020Q2

REPORT INFORMATION
  Report Type: Spontaneous
  Country: US (occurrence: US)
  Receive Date: 20200520
  Receipt Date: 20200520
  Transmission Date: 20200714
  Serious: Yes (Other)
  Sender: FDA-Public Use
  Company Number: US-TERUMO BCT-2084036

PATIENT
  Sex: Female

DRUGS (1)
  1. SODIUM CITRATE 4% W/V ANTICOAGULANT [Suspect]
     Active Substance: TRISODIUM CITRATE DIHYDRATE
     Route: 042
     Dates: start: 20200215, end: 20200215

REACTIONS (1)
  - Anaphylactic reaction [Recovered/Resolved]

NARRATIVE: CASE EVENT DATE: 20200215
